FAERS Safety Report 15525689 (Version 3)
Quarter: 2019Q1

REPORT INFORMATION
  Report Type: Spontaneous
  Country: US (occurrence: US)
  Receive Date: 20181018
  Receipt Date: 20190107
  Transmission Date: 20190417
  Serious: No
  Sender: FDA-Public Use
  Company Number: US-PFIZER INC-2018414348

PATIENT
  Age: 43 Year
  Sex: Male
  Weight: 105.21 kg

DRUGS (14)
  1. FISH OIL [Concomitant]
     Active Substance: FISH OIL
     Dosage: UNK
  2. DESMOPRESSIN ACETATE. [Concomitant]
     Active Substance: DESMOPRESSIN ACETATE
     Dosage: UNK
  3. HYDROCORTISONE. [Concomitant]
     Active Substance: HYDROCORTISONE
     Dosage: 20 MG, UNK
  4. MAGNESIUM OXIDE. [Concomitant]
     Active Substance: MAGNESIUM OXIDE
     Dosage: 400 MG, UNK
  5. PRILOSEC [Concomitant]
     Active Substance: OMEPRAZOLE MAGNESIUM
     Dosage: 20 MG, UNK
  6. AMBIEN [Concomitant]
     Active Substance: ZOLPIDEM TARTRATE
     Dosage: UNK
  7. SYNTHROID [Concomitant]
     Active Substance: LEVOTHYROXINE SODIUM
     Dosage: 88 UG, UNK
  8. GENOTROPIN MQ [Suspect]
     Active Substance: SOMATROPIN
     Indication: HYPOPITUITARISM
     Dosage: 0.4 MG, DAILY
     Route: 058
     Dates: start: 20150304
  9. ZINC CHELATED [Concomitant]
     Dosage: 50 MG, UNK
  10. AXIRON [Concomitant]
     Active Substance: TESTOSTERONE
     Dosage: UNK
  11. MECLIZINE HCL [Concomitant]
     Active Substance: MECLIZINE HYDROCHLORIDE
     Dosage: 25 MG, UNK
  12. GENOTROPIN MQ [Suspect]
     Active Substance: SOMATROPIN
     Dosage: 0.2 MG, DAILY
  13. COENZYME Q10 [Concomitant]
     Active Substance: UBIDECARENONE
     Dosage: UNK
  14. VITAMIN C [Concomitant]
     Active Substance: ASCORBIC ACID
     Dosage: 500 MG, UNK

REACTIONS (6)
  - Intentional product use issue [Unknown]
  - Injection site pain [Unknown]
  - Insulin-like growth factor increased [Unknown]
  - Headache [Unknown]
  - Bone density increased [Unknown]
  - Blood glucose increased [Unknown]
